FAERS Safety Report 5558365-3 (Version None)
Quarter: 2007Q4

REPORT INFORMATION
  Report Type: 
  Country: None (occurrence: None)
  Receive Date: 20071214
  Receipt Date: 20071204
  Transmission Date: 20080405
  Serious: Yes (Other)
  Sender: FDA-Public Use
  Company Number: US-PFIZER INC-2007102175

PATIENT
  Sex: Female
  Weight: 75 kg

DRUGS (1)
  1. DILANTIN [Suspect]
     Indication: CONVULSION

REACTIONS (7)
  - CONVULSION [None]
  - DYSGEUSIA [None]
  - FLUID RETENTION [None]
  - MYOCARDIAL INFARCTION [None]
  - PAROSMIA [None]
  - SENSATION OF FOREIGN BODY [None]
  - STOMACH DISCOMFORT [None]
